FAERS Safety Report 25822000 (Version 1)
Quarter: 2025Q3

REPORT INFORMATION
  Report Type: Spontaneous
  Country: GB (occurrence: GB)
  Receive Date: 20250919
  Receipt Date: 20250919
  Transmission Date: 20251021
  Serious: Yes (Life-Threatening, Other)
  Sender: ABBVIE
  Company Number: None

PATIENT
  Age: 41 Year
  Sex: Female
  Weight: 76 kg

DRUGS (4)
  1. ADALIMUMAB [Suspect]
     Active Substance: ADALIMUMAB
     Indication: Rheumatoid arthritis
     Route: 058
     Dates: start: 20230222, end: 20250826
  2. ETORICOXIB [Concomitant]
     Active Substance: ETORICOXIB
     Indication: Rheumatoid arthritis
     Dates: start: 20201202, end: 20250826
  3. VENLAFAXINE [Concomitant]
     Active Substance: VENLAFAXINE HYDROCHLORIDE
     Indication: Depression
     Dates: start: 20190822
  4. HYDROXYCHLOROQUINE [Concomitant]
     Active Substance: HYDROXYCHLOROQUINE
     Indication: Rheumatoid arthritis
     Dates: start: 20170828, end: 20250826

REACTIONS (6)
  - Cardiac failure acute [Not Recovered/Not Resolved]
  - Fatigue [Unknown]
  - Exercise tolerance decreased [Unknown]
  - Orthopnoea [Unknown]
  - Chest pain [Unknown]
  - Ventricular dysfunction [Unknown]

NARRATIVE: CASE EVENT DATE: 20250908
